FAERS Safety Report 7656191-2 (Version None)
Quarter: 2011Q3

REPORT INFORMATION
  Report Type: 
  Country: None (occurrence: None)
  Receive Date: 20110804
  Receipt Date: 20110722
  Transmission Date: 20111222
  Serious: Yes (Other)
  Sender: FDA-Public Use
  Company Number: HU-SANOFI-AVENTIS-2011SA048170

PATIENT
  Age: 79 Year
  Sex: Female
  Weight: 69 kg

DRUGS (5)
  1. PERINDOPRIL [Concomitant]
  2. ATORVASTATIN [Concomitant]
  3. BISOPROLOL FUMARATE [Concomitant]
  4. DRONEDARONE HCL [Suspect]
     Indication: ATRIAL FIBRILLATION
     Route: 048
     Dates: start: 20101116, end: 20101214
  5. FUROSEMIDE [Concomitant]

REACTIONS (1)
  - CARDIAC FAILURE [None]
